FAERS Safety Report 16808879 (Version 1)
Quarter: 2019Q4

REPORT INFORMATION
  Report Type: Spontaneous
  Country: US (occurrence: US)
  Receive Date: 20190913
  Receipt Date: 20190913
  Transmission Date: 20200122
  Serious: Yes (Other)
  Sender: FDA-Public Use
  Company Number: None

PATIENT
  Age: 49 Year
  Sex: Female

DRUGS (1)
  1. ARMODAFINIL 250MG TAB AUR [Suspect]
     Active Substance: ARMODAFINIL
     Indication: FATIGUE
     Dosage: ?          QUANTITY:90 TABLET(S);?
     Route: 048
     Dates: start: 20190815

REACTIONS (3)
  - Vomiting [None]
  - Product coating issue [None]
  - Dysgeusia [None]

NARRATIVE: CASE EVENT DATE: 20190815
